FAERS Safety Report 16896859 (Version 5)
Quarter: 2020Q1

REPORT INFORMATION
  Report Type: Spontaneous
  Country: CA (occurrence: CA)
  Receive Date: 20191009
  Receipt Date: 20200324
  Transmission Date: 20200409
  Serious: Yes (Other)
  Sender: FDA-Public Use
  Company Number: CA-CELLTRION INC.-2019CA022828

PATIENT

DRUGS (15)
  1. INFLECTRA [Suspect]
     Active Substance: INFLIXIMAB-DYYB
     Dosage: 10 MG/KG, EVERY 8 WEEKS
     Dates: start: 20190925
  2. INFLECTRA [Suspect]
     Active Substance: INFLIXIMAB-DYYB
     Dosage: 10 MG/KG, EVERY 8 WEEKS
     Dates: start: 20200113
  3. ERGOCALCIFEROL. [Concomitant]
     Active Substance: ERGOCALCIFEROL
     Dosage: 50000 UNITS BY MOUTH EVERY 3 DAYS
     Route: 048
  4. INFLECTRA [Suspect]
     Active Substance: INFLIXIMAB-DYYB
     Indication: COLITIS ULCERATIVE
     Dosage: 10 MG/KG (700 MG; Q 0, 4 DAYS, 5 WEEKS, THEN EVERY 8 WEEKS)
     Route: 042
     Dates: start: 20190625, end: 20190625
  5. INFLECTRA [Suspect]
     Active Substance: INFLIXIMAB-DYYB
     Dosage: 10 MG/KG (700 MG; Q 0, 4 DAYS, 5 WEEKS, THEN EVERY 8 WEEKS)
     Route: 042
     Dates: start: 20190801, end: 20190801
  6. PREDNISONE. [Concomitant]
     Active Substance: PREDNISONE
     Dosage: 40 MG, DAILY (TAPERING)
     Route: 048
  7. METHOTREXATE. [Concomitant]
     Active Substance: METHOTREXATE
     Dosage: 12.5 MG EVERY 7 DAYS
     Route: 048
     Dates: start: 20190622
  8. INFLECTRA [Suspect]
     Active Substance: INFLIXIMAB-DYYB
     Dosage: 10 MG/KG, EVERY 8 WEEKS
     Dates: start: 20191120
  9. INFLECTRA [Suspect]
     Active Substance: INFLIXIMAB-DYYB
     Dosage: 10 MG/KG, EVERY 8 WEEKS
     Dates: start: 20200314
  10. FOLIC ACID. [Concomitant]
     Active Substance: FOLIC ACID
     Dosage: 2 MG, DAILY, EXCEP FOR THE DAY OF MTX(SKIP FOLIC ACID EVERY SUNDAY)
     Route: 048
  11. ZINC. [Concomitant]
     Active Substance: ZINC
     Dosage: 50 MG, DAILY
     Route: 048
  12. 5-ASA [Concomitant]
     Active Substance: MESALAMINE
     Dosage: UNK
     Route: 065
     Dates: start: 201901
  13. INFLECTRA [Suspect]
     Active Substance: INFLIXIMAB-DYYB
     Indication: CROHN^S DISEASE
     Dosage: 10 MG/KG (700 MG; Q 0, 4 DAYS, 5 WEEKS, THEN EVERY 8 WEEKS)
     Route: 042
     Dates: start: 20190628, end: 20190628
  14. INFLECTRA [Suspect]
     Active Substance: INFLIXIMAB-DYYB
     Dosage: 10 MG/KG, EVERY 8 WEEKS
     Dates: start: 20190925
  15. PANTOPRAZOLE [PANTOPRAZOLE SODIUM SESQUIHYDRATE] [Concomitant]
     Active Substance: PANTOPRAZOLE SODIUM
     Dosage: 40 MG, DAILY (BEFORE BREAKFAST)
     Route: 048

REACTIONS (6)
  - Inappropriate schedule of product administration [Unknown]
  - Off label use [Unknown]
  - Treatment failure [Unknown]
  - Weight increased [Recovering/Resolving]
  - Condition aggravated [Not Recovered/Not Resolved]
  - Weight decreased [Unknown]

NARRATIVE: CASE EVENT DATE: 2019
